FAERS Safety Report 14838545 (Version 1)
Quarter: 2018Q2

REPORT INFORMATION
  Report Type: Spontaneous
  Country: DE (occurrence: DE)
  Receive Date: 20180502
  Receipt Date: 20180502
  Transmission Date: 20180711
  Serious: Yes (Hospitalization, Congenital Anomaly, Other)
  Sender: FDA-Public Use
  Company Number: DE-MYLANLABS-2018M1027500

PATIENT
  Sex: Male
  Weight: 2.7 kg

DRUGS (6)
  1. RITUXIMAB. [Suspect]
     Active Substance: RITUXIMAB
     Dosage: 700 MG, CYCLE
     Route: 064
  2. RITUXIMAB. [Suspect]
     Active Substance: RITUXIMAB
     Indication: DIFFUSE LARGE B-CELL LYMPHOMA
     Dosage: AT GA 25 6/7 WEEKS
     Route: 064
  3. PREDNISOLONE. [Suspect]
     Active Substance: PREDNISOLONE
     Indication: DIFFUSE LARGE B-CELL LYMPHOMA
     Dosage: 5 CONSECUTIVE DAYS
     Route: 064
  4. DOXORUBICIN [Suspect]
     Active Substance: DOXORUBICIN
     Indication: DIFFUSE LARGE B-CELL LYMPHOMA
     Route: 064
  5. CYCLOPHOSPHAMIDE. [Suspect]
     Active Substance: CYCLOPHOSPHAMIDE
     Indication: DIFFUSE LARGE B-CELL LYMPHOMA
     Dosage: 1400 MG, CYCLE
     Route: 064
  6. VINCRISTINE [Suspect]
     Active Substance: VINCRISTINE
     Indication: DIFFUSE LARGE B-CELL LYMPHOMA
     Dosage: 2 MG, CYCLE
     Route: 064

REACTIONS (19)
  - Cardiotoxicity [Recovered/Resolved]
  - Troponin T increased [Recovering/Resolving]
  - Congenital cardiovascular anomaly [Recovered/Resolved]
  - Cardiac output decreased [Recovered/Resolved]
  - Renal impairment [Recovering/Resolving]
  - Echocardiogram abnormal [Recovered/Resolved]
  - Chest X-ray abnormal [Recovered/Resolved]
  - Cardiomyopathy neonatal [Recovered/Resolved]
  - Acute kidney injury [Recovering/Resolving]
  - Blood creatine phosphokinase increased [Recovering/Resolving]
  - N-terminal prohormone brain natriuretic peptide increased [Recovering/Resolving]
  - Cardiovascular insufficiency [Recovering/Resolving]
  - Foetal exposure during pregnancy [Unknown]
  - Anuria [Recovering/Resolving]
  - Respiratory failure [Recovering/Resolving]
  - Blood creatine phosphokinase MB increased [Recovering/Resolving]
  - Acidosis [Recovering/Resolving]
  - Mean arterial pressure decreased [Recovering/Resolving]
  - Ejection fraction decreased [Recovering/Resolving]
